FAERS Safety Report 7458563-8 (Version None)
Quarter: 2011Q2

REPORT INFORMATION
  Report Type: 
  Country: None (occurrence: None)
  Receive Date: 20110504
  Receipt Date: 20110503
  Transmission Date: 20111010
  Serious: Yes (Life-Threatening, Hospitalization)
  Sender: FDA-Public Use
  Company Number: US-ROXANE LABORATORIES, INC.-2010-RO-01343RO

PATIENT
  Age: 4 Year
  Sex: Female

DRUGS (1)
  1. METHADONE [Suspect]
     Dates: start: 20101007, end: 20101007

REACTIONS (2)
  - OVERDOSE [None]
  - CARDIAC ARREST [None]
